FAERS Safety Report 6294975-6 (Version None)
Quarter: 2009Q3

REPORT INFORMATION
  Report Type: 
  Country: None (occurrence: None)
  Receive Date: 20090730
  Receipt Date: 20090708
  Transmission Date: 20100115
  Serious: Yes (Life-Threatening, Hospitalization, Other)
  Sender: FDA-Public Use
  Company Number: JPI-P-006392

PATIENT
  Age: 13 Year
  Sex: Male

DRUGS (1)
  1. FLUVOXAMINE MALEATE [Suspect]
     Indication: DEPRESSION
     Dosage: (25 MG, 1 D), ORAL
     Route: 048
     Dates: start: 20080320, end: 20081123

REACTIONS (6)
  - ALTERED STATE OF CONSCIOUSNESS [None]
  - DYSPHAGIA [None]
  - HYPOMANIA [None]
  - PNEUMONIA ASPIRATION [None]
  - PSYCHOTIC DISORDER [None]
  - SUICIDE ATTEMPT [None]
